FAERS Safety Report 25126442 (Version 2)
Quarter: 2025Q3

REPORT INFORMATION
  Report Type: Other
  Country: CA (occurrence: CA)
  Receive Date: 20250327
  Receipt Date: 20250714
  Transmission Date: 20251020
  Serious: Yes (Other)
  Sender: APOTEX
  Company Number: CA-APOTEX-2023AP015324

PATIENT
  Age: 63 Year
  Sex: Male

DRUGS (5)
  1. CITALOPRAM [Interacting]
     Active Substance: CITALOPRAM
     Indication: Anxiety
     Route: 065
  2. CITALOPRAM [Interacting]
     Active Substance: CITALOPRAM
     Route: 065
  3. CIBINQO [Interacting]
     Active Substance: ABROCITINIB
     Indication: Dermatitis atopic
     Dosage: 50 MILLIGRAM, QD
     Route: 048
  4. CIBINQO [Interacting]
     Active Substance: ABROCITINIB
     Dosage: 100 MILLIGRAM, QD, THERAPY DURATION: 306 (UNIT UNKNOWN)
     Route: 048
  5. CIBINQO [Interacting]
     Active Substance: ABROCITINIB
     Route: 048

REACTIONS (9)
  - Blood triglycerides increased [Not Recovered/Not Resolved]
  - Drug interaction [Not Recovered/Not Resolved]
  - Malignant neoplasm of eye [Not Recovered/Not Resolved]
  - Off label use [Not Recovered/Not Resolved]
  - Pruritus [Not Recovered/Not Resolved]
  - Insomnia [Not Recovered/Not Resolved]
  - Anxiety [Not Recovered/Not Resolved]
  - Metastases to neck [Not Recovered/Not Resolved]
  - Therapeutic response shortened [Not Recovered/Not Resolved]
